FAERS Safety Report 13042300 (Version 1)
Quarter: 2016Q4

REPORT INFORMATION
  Report Type: Spontaneous
  Country: US (occurrence: US)
  Receive Date: 20161219
  Receipt Date: 20161219
  Transmission Date: 20170207
  Serious: Yes (Hospitalization)
  Sender: FDA-Public Use
  Company Number: US-EDGEMONT-2016EDG00035

PATIENT
  Sex: Female

DRUGS (2)
  1. FLUOXETINE [Suspect]
     Active Substance: FLUOXETINE HYDROCHLORIDE
     Indication: DEPRESSED MOOD
     Dosage: UNK
     Route: 065
  2. THIAZIDE DIURETIC [Suspect]
     Active Substance: UNSPECIFIED INGREDIENT
     Indication: HYPERTENSION
     Route: 065

REACTIONS (3)
  - Inappropriate antidiuretic hormone secretion [Recovered/Resolved]
  - Drug interaction [Recovered/Resolved]
  - Hyponatraemia [Recovered/Resolved]
